FAERS Safety Report 6058330-6 (Version None)
Quarter: 2009Q1

REPORT INFORMATION
  Report Type: 
  Country: None (occurrence: None)
  Receive Date: 20090130
  Receipt Date: 20090122
  Transmission Date: 20090719
  Serious: Yes (Hospitalization, Other)
  Sender: FDA-Public Use
  Company Number: US-AMGEN-US318703

PATIENT
  Sex: Female
  Weight: 109.9 kg

DRUGS (13)
  1. PROCRIT [Suspect]
     Indication: ANAEMIA
     Route: 058
     Dates: start: 20070918, end: 20080715
  2. RIBAVIRIN [Suspect]
     Dates: start: 20070810, end: 20080407
  3. LOTREL [Concomitant]
     Route: 048
     Dates: start: 20070101
  4. HYDROCHLOROTHIAZIDE [Concomitant]
     Route: 048
     Dates: start: 20070101
  5. PEGASYS [Concomitant]
     Dates: start: 20070810, end: 20080314
  6. EFFEXOR [Concomitant]
     Route: 048
     Dates: start: 20070101
  7. ATIVAN [Concomitant]
     Route: 065
     Dates: start: 20080201
  8. RESTORIL [Concomitant]
     Route: 065
     Dates: start: 20080501
  9. PREDNISONE [Concomitant]
     Route: 065
     Dates: start: 20080601
  10. BENICAR [Concomitant]
     Route: 065
     Dates: start: 20080601
  11. LORTAB [Concomitant]
     Route: 065
     Dates: start: 20080601
  12. PROZAC [Concomitant]
     Route: 065
     Dates: start: 20080601
  13. FLEXERIL [Concomitant]
     Route: 048
     Dates: start: 20080601

REACTIONS (5)
  - APLASIA PURE RED CELL [None]
  - APLASTIC ANAEMIA [None]
  - HEADACHE [None]
  - LICHEN PLANUS [None]
  - UPPER RESPIRATORY TRACT INFECTION [None]
